FAERS Safety Report 10575258 (Version 1)
Quarter: 2014Q4

REPORT INFORMATION
  Report Type: Spontaneous
  Country: DE (occurrence: DE)
  Receive Date: 20141111
  Receipt Date: 20141111
  Transmission Date: 20150529
  Serious: Yes (Congenital Anomaly, Other)
  Sender: FDA-Public Use
  Company Number: DE-AUROBINDO-AUR-APL-2014-11674

PATIENT
  Sex: Female
  Weight: 3.28 kg

DRUGS (2)
  1. FEMIBION [Concomitant]
     Active Substance: VITAMINS
     Indication: PROPHYLAXIS OF NEURAL TUBE DEFECT
     Dosage: UNK
     Route: 064
     Dates: start: 20131112, end: 20140623
  2. PAROXETINE 20MG (PAROXETINE) UNKNOWN, 20MG [Suspect]
     Active Substance: PAROXETINE\PAROXETINE HYDROCHLORIDE
     Indication: DEPRESSION
     Dosage: 20 MG, ONCE A DAY, DOSAGE BETWEEN 10 AND 20 MG/D
     Route: 064
     Dates: start: 20130926, end: 20140623

REACTIONS (3)
  - Pyelocaliectasis [Unknown]
  - Congenital hydronephrosis [Unknown]
  - Foetal exposure during pregnancy [Unknown]
